FAERS Safety Report 6003696-6 (Version None)
Quarter: 2008Q4

REPORT INFORMATION
  Report Type: 
  Country: None (occurrence: None)
  Receive Date: 20081216
  Receipt Date: 20080505
  Transmission Date: 20090506
  Serious: No
  Sender: FDA-Public Use
  Company Number: US-AMGEN-KDL277527

PATIENT
  Sex: Female

DRUGS (13)
  1. ARANESP [Suspect]
     Indication: RENAL FAILURE CHRONIC
     Route: 058
     Dates: start: 20070723
  2. ALTACE [Concomitant]
  3. GLYBURIDE [Concomitant]
  4. COREG [Concomitant]
  5. AVANDIA [Concomitant]
  6. LASIX [Concomitant]
  7. NORVASC [Concomitant]
  8. JANUVIA [Concomitant]
  9. UNSPECIFIED OPHTHALMIC PREPARATION [Concomitant]
  10. LIPITOR [Concomitant]
  11. ARICEPT [Concomitant]
  12. VITAMINS [Concomitant]
  13. IRON [Concomitant]
     Route: 048

REACTIONS (2)
  - DIARRHOEA [None]
  - INFLUENZA [None]
